FAERS Safety Report 5880992-4 (Version None)
Quarter: 2008Q3

REPORT INFORMATION
  Report Type: 
  Country: None (occurrence: None)
  Receive Date: 20080912
  Receipt Date: 20080616
  Transmission Date: 20090109
  Serious: No
  Sender: FDA-Public Use
  Company Number: US-ABBOTT-08P-163-0457528-00

PATIENT
  Sex: Female
  Weight: 59.02 kg

DRUGS (5)
  1. HUMIRA [Suspect]
     Indication: JUVENILE ARTHRITIS
     Route: 058
     Dates: start: 20070601
  2. METHOTREXATE [Concomitant]
     Indication: JUVENILE ARTHRITIS
     Dosage: WEANED OFF DAILY, WEEKLY DOSE CHANGES
     Route: 048
     Dates: start: 20061201, end: 20080601
  3. NAPROXEN SODIUM [Concomitant]
     Indication: JUVENILE ARTHRITIS
     Route: 048
     Dates: start: 20051201
  4. RANITIDINE [Concomitant]
     Indication: GASTROOESOPHAGEAL REFLUX DISEASE
     Route: 048
     Dates: start: 20051201
  5. FOLIC ACID [Concomitant]
     Indication: VITAMIN SUPPLEMENTATION
     Dosage: 2-3 TABS DAILY (UNIT DOSE)
     Route: 048
     Dates: start: 20061201

REACTIONS (1)
  - INJECTION SITE PAIN [None]
